FAERS Safety Report 9771971 (Version 3)
Quarter: 2013Q4

REPORT INFORMATION
  Report Type: Report from Study
  Country: CA (occurrence: CA)
  Receive Date: 20131219
  Receipt Date: 20131226
  Transmission Date: 20140711
  Serious: Yes (Hospitalization, Other)
  Sender: FDA-Public Use
  Company Number: CA-ROCHE-1322593

PATIENT
  Age: 77 Year
  Sex: Female
  Weight: 56.75 kg

DRUGS (7)
  1. ACTEMRA [Suspect]
     Indication: RHEUMATOID ARTHRITIS
     Route: 042
     Dates: start: 20120926
  2. RITUXAN [Suspect]
     Indication: RHEUMATOID ARTHRITIS
     Route: 042
     Dates: start: 20100427, end: 20100511
  3. TYLENOL [Concomitant]
  4. CODEINE [Concomitant]
  5. ACETAMINOPHEN [Concomitant]
     Route: 048
     Dates: start: 20100427, end: 20100511
  6. DIPHENHYDRAMINE HCL [Concomitant]
     Route: 048
     Dates: start: 20100427, end: 20100511
  7. SOLU-CORTEF [Concomitant]
     Route: 042
     Dates: start: 20100427, end: 20100511

REACTIONS (3)
  - Fall [Unknown]
  - Pelvic fracture [Not Recovered/Not Resolved]
  - Arthralgia [Unknown]
